FAERS Safety Report 21126610 (Version 1)
Quarter: 2022Q3

REPORT INFORMATION
  Report Type: Spontaneous
  Country: US (occurrence: US)
  Receive Date: 20220725
  Receipt Date: 20220725
  Transmission Date: 20221026
  Serious: No
  Sender: FDA-Public Use
  Company Number: US-TEVA-2022-US-2054821

PATIENT
  Sex: Male

DRUGS (1)
  1. AMPHETAMINE SULFATE\DEXTROAMPHETAMINE [Suspect]
     Active Substance: AMPHETAMINE SULFATE\DEXTROAMPHETAMINE
     Indication: Attention deficit hyperactivity disorder
     Dosage: 20 MG
     Route: 065

REACTIONS (5)
  - Therapeutic product effect decreased [Unknown]
  - Disturbance in attention [Unknown]
  - Epistaxis [Unknown]
  - Headache [Unknown]
  - Dyspnoea [Unknown]
